FAERS Safety Report 9630218 (Version 1)
Quarter: 2013Q4

REPORT INFORMATION
  Report Type: Spontaneous
  Country: GB (occurrence: GB)
  Receive Date: 20131017
  Receipt Date: 20131017
  Transmission Date: 20140711
  Serious: Yes (Hospitalization)
  Sender: FDA-Public Use
  Company Number: PHFR2013GB005723

PATIENT
  Sex: Male

DRUGS (2)
  1. DAPTOMYCIN [Suspect]
     Indication: ARTHRITIS BACTERIAL
  2. RIFAMPICIN [Suspect]

REACTIONS (2)
  - Rhabdomyolysis [Recovered/Resolved]
  - Renal failure acute [Unknown]
